FAERS Safety Report 5609964-1 (Version None)
Quarter: 2008Q1

REPORT INFORMATION
  Report Type: 
  Country: None (occurrence: None)
  Receive Date: 20080131
  Receipt Date: 20071128
  Transmission Date: 20080703
  Serious: No
  Sender: FDA-Public Use
  Company Number: US-BAYER-200715554NA

PATIENT
  Age: 44 Year
  Sex: Female
  Weight: 82 kg

DRUGS (4)
  1. YAZ [Suspect]
     Indication: PREMENSTRUAL SYNDROME
     Route: 048
     Dates: start: 20071111, end: 20071128
  2. PRAVACHOL [Concomitant]
  3. NEXIUM [Concomitant]
  4. REGLAN [Concomitant]

REACTIONS (1)
  - HEADACHE [None]
